FAERS Safety Report 6915005-6 (Version None)
Quarter: 2010Q3

REPORT INFORMATION
  Report Type: 
  Country: None (occurrence: None)
  Receive Date: 20100809
  Receipt Date: 20100729
  Transmission Date: 20110219
  Serious: Yes (Hospitalization)
  Sender: FDA-Public Use
  Company Number: CH-AMGEN-QUU427252

PATIENT
  Sex: Female
  Weight: 99 kg

DRUGS (9)
  1. ENBREL [Suspect]
     Indication: RHEUMATOID ARTHRITIS
     Route: 058
     Dates: start: 20100430
  2. ENBREL [Suspect]
     Dosage: 50 MG; UNSPECIFIED FREQUENCY
     Route: 058
     Dates: start: 20100518, end: 20100726
  3. METHOTREXATE [Suspect]
     Indication: RHEUMATOID ARTHRITIS
     Dosage: 10-25 MG ONCE WEEKLY
     Route: 048
     Dates: start: 20100410
  4. METHOTREXATE [Suspect]
     Dosage: 2.5 MG; UNSPECIFIED FREQUENCY
     Route: 048
     Dates: start: 20100518, end: 20100726
  5. PARACETAMOL [Concomitant]
     Indication: MIGRAINE
     Dosage: 3 G AS NEEDED
     Dates: start: 20100505
  6. PANTOPRAZOLE [Concomitant]
     Indication: GASTROOESOPHAGEAL REFLUX DISEASE
     Dosage: 40 MG; UNSPECIFIED FREQUENCY
     Dates: start: 20100421
  7. HEPARIN-FRACTION, CALCIUM SALT [Concomitant]
     Dosage: 4MG ONCE
     Route: 058
     Dates: start: 20100611, end: 20100611
  8. HEPARIN-FRACTION, CALCIUM SALT [Concomitant]
     Dosage: 4 MG ONCE
     Route: 058
     Dates: start: 20100623, end: 20100623
  9. ACETAMINOPHEN [Concomitant]
     Indication: RHEUMATOID ARTHRITIS
     Dosage: UNSPECIFIED
     Dates: start: 20100301

REACTIONS (2)
  - GASTRITIS EROSIVE [None]
  - HEPATIC STEATOSIS [None]
